FAERS Safety Report 21602585 (Version 1)
Quarter: 2022Q4

REPORT INFORMATION
  Report Type: Spontaneous
  Country: PT (occurrence: PT)
  Receive Date: 20221116
  Receipt Date: 20221116
  Transmission Date: 20230112
  Serious: Yes (Hospitalization)
  Sender: FDA-Public Use
  Company Number: PT-COSETTE-CP2022PT000296

PATIENT
  Age: 70 Year
  Sex: Female

DRUGS (1)
  1. AZOR [Suspect]
     Active Substance: AMLODIPINE BESYLATE\OLMESARTAN MEDOXOMIL
     Indication: Hypertension
     Dosage: 5/20 MG
     Route: 065

REACTIONS (2)
  - Metabolic acidosis [Recovered/Resolved]
  - Sprue-like enteropathy [Recovered/Resolved]
